FAERS Safety Report 19990919 (Version 1)
Quarter: 2021Q4

REPORT INFORMATION
  Report Type: Spontaneous
  Country: US (occurrence: US)
  Receive Date: 20211025
  Receipt Date: 20211025
  Transmission Date: 20220303
  Serious: Yes (Hospitalization)
  Sender: FDA-Public Use
  Company Number: US-ROCHE-2941032

PATIENT
  Age: 67 Year
  Sex: Male

DRUGS (3)
  1. COTELLIC [Suspect]
     Active Substance: COBIMETINIB
     Indication: Malignant connective tissue neoplasm
     Dosage: TAKES 1 TABLET BY MOUTH DAILY FOR 3 WEEKS, THEN 1 WEEK OFF.
     Route: 048
     Dates: start: 20210813
  2. COTELLIC [Suspect]
     Active Substance: COBIMETINIB
     Indication: Soft tissue sarcoma
  3. ETOPOSIDE [Concomitant]
     Active Substance: ETOPOSIDE

REACTIONS (3)
  - Intestinal obstruction [Unknown]
  - Fatigue [Unknown]
  - Diarrhoea [Unknown]

NARRATIVE: CASE EVENT DATE: 20210928
